FAERS Safety Report 25032257 (Version 1)
Quarter: 2025Q1

REPORT INFORMATION
  Report Type: Spontaneous
  Country: HR (occurrence: HR)
  Receive Date: 20250303
  Receipt Date: 20250303
  Transmission Date: 20250409
  Serious: Yes (Other)
  Sender: RECKITT BENCKISER
  Company Number: None

PATIENT

DRUGS (2)
  1. SUBUTEX [Suspect]
     Active Substance: BUPRENORPHINE HYDROCHLORIDE
     Indication: Product used for unknown indication
     Dosage: 8 MILLIGRAM, QD
     Route: 042
     Dates: start: 20250112, end: 20250112
  2. LYRICA [Suspect]
     Active Substance: PREGABALIN
     Indication: Product used for unknown indication
     Dosage: TOOK 700 MG IN THE MORNING, ANOTHER 300 MG AROUND 3:00 PM
     Route: 048
     Dates: start: 20250112, end: 20250112

REACTIONS (6)
  - Pallor [Unknown]
  - Drug withdrawal syndrome [Unknown]
  - Tremor [Unknown]
  - Overdose [Unknown]
  - Drug abuse [Unknown]
  - Incorrect route of product administration [Unknown]

NARRATIVE: CASE EVENT DATE: 20250112
